FAERS Safety Report 19959718 (Version 1)
Quarter: 2021Q4

REPORT INFORMATION
  Report Type: Spontaneous
  Country: US (occurrence: US)
  Receive Date: 20211015
  Receipt Date: 20211015
  Transmission Date: 20220303
  Serious: No
  Sender: FDA-Public Use
  Company Number: None

PATIENT
  Age: 63 Year
  Sex: Female
  Weight: 51.75 kg

DRUGS (14)
  1. CYCLOPHOSPHAMIDE [Suspect]
     Active Substance: CYCLOPHOSPHAMIDE
     Indication: Plasma cell myeloma
     Dosage: ?          OTHER FREQUENCY:WEEKLY X 3/4 WEEKS;
     Route: 048
     Dates: start: 20210813
  2. NINLARO [Concomitant]
     Active Substance: IXAZOMIB CITRATE
  3. ACYCLOVIR [Concomitant]
     Active Substance: ACYCLOVIR
  4. Calcium Magnesium 750 300-300mg [Concomitant]
  5. Vitamin D 1000IU [Concomitant]
  6. DEXAMETHASONE [Concomitant]
     Active Substance: DEXAMETHASONE
  7. FERROUS SULFATE [Concomitant]
     Active Substance: FERROUS SULFATE
  8. Thera M Plus [Concomitant]
  9. ONDANSETRON [Concomitant]
     Active Substance: ONDANSETRON
  10. VITAMIN B COMPLEX [Concomitant]
     Active Substance: CYANOCOBALAMIN\DEXPANTHENOL\NIACINAMIDE\PYRIDOXINE HYDROCHLORIDE\RIBOFLAVIN 5^-PHOSPHATE SODIUM\THIA
  11. VITAMINS [Concomitant]
     Active Substance: VITAMINS
  12. Famotidine 10mg [Concomitant]
  13. CLARITIN [Concomitant]
     Active Substance: LORATADINE
  14. Metaxalone 400mg [Concomitant]

REACTIONS (2)
  - Neuropathy peripheral [None]
  - Inflammation [None]

NARRATIVE: CASE EVENT DATE: 20211015
